FAERS Safety Report 5636095-7 (Version None)
Quarter: 2008Q1

REPORT INFORMATION
  Report Type: 
  Country: None (occurrence: None)
  Receive Date: 20080225
  Receipt Date: 20080214
  Transmission Date: 20080703
  Serious: Yes (Hospitalization)
  Sender: FDA-Public Use
  Company Number: US-JNJFOC-20080203749

PATIENT
  Sex: Female
  Weight: 90.72 kg

DRUGS (5)
  1. DURAGESIC-100 [Suspect]
     Dosage: 2 X 50 MCG
     Route: 062
  2. DURAGESIC-100 [Suspect]
     Dosage: 2 X 50 UG/HR PATCHES
     Route: 062
  3. DURAGESIC-100 [Suspect]
     Dosage: 2 X 50 MCG
     Route: 062
  4. DURAGESIC-100 [Suspect]
     Indication: BACK PAIN
     Dosage: 2 X 50 MCG/HR PATCHES
     Route: 062
  5. NORCO [Concomitant]
     Indication: BACK PAIN
     Route: 048

REACTIONS (4)
  - INCORRECT DRUG ADMINISTRATION DURATION [None]
  - MEDICAL DEVICE REMOVAL [None]
  - PAIN [None]
  - SPINAL FUSION SURGERY [None]
